FAERS Safety Report 9142379 (Version 2)
Quarter: 2013Q2

REPORT INFORMATION
  Report Type: Spontaneous
  Country: AU (occurrence: AU)
  Receive Date: 20130306
  Receipt Date: 20130508
  Transmission Date: 20140414
  Serious: Yes (Hospitalization, Disabling)
  Sender: FDA-Public Use
  Company Number: AU-009507513-1301AUS009975

PATIENT
  Age: 49 Year
  Sex: Male
  Weight: 105 kg

DRUGS (9)
  1. VICTRELIS 200 MG [Suspect]
     Dosage: 200 UNK, UNK
     Dates: start: 20120622, end: 20130115
  2. PEG-INTRON [Suspect]
     Dosage: 150 MICROGRAM
     Dates: start: 20120522, end: 20120824
  3. PEG-INTRON [Suspect]
     Dosage: 120 MICROGRAM
     Dates: start: 20120824, end: 20121101
  4. PEG-INTRON [Suspect]
     Dosage: 96 MICROGRAM
     Dates: start: 20121101, end: 20121116
  5. PEG-INTRON [Suspect]
     Dosage: 72 MICROGRAM
     Dates: start: 20121116, end: 20130115
  6. REBETOL [Suspect]
     Dosage: 1400MG
     Dates: start: 20120522, end: 20120716
  7. REBETOL [Suspect]
     Dosage: 1200 MG
     Dates: start: 20120716, end: 20120726
  8. REBETOL [Suspect]
     Dosage: 600 MG
     Dates: start: 20120726, end: 20120910
  9. REBETOL [Suspect]
     Dosage: 800 MG
     Dates: start: 20120910, end: 20130115

REACTIONS (6)
  - Depression [Recovering/Resolving]
  - Dyspnoea [Recovering/Resolving]
  - Fatigue [Recovering/Resolving]
  - Irritability [Recovering/Resolving]
  - Insomnia [Recovering/Resolving]
  - Anaemia [Recovering/Resolving]
